FAERS Safety Report 4655161-6 (Version None)
Quarter: 2005Q2

REPORT INFORMATION
  Report Type: 
  Country: None (occurrence: None)
  Receive Date: 20050505
  Receipt Date: 20050419
  Transmission Date: 20051028
  Serious: Yes (Other)
  Sender: FDA-Public Use
  Company Number: 2005-DE-01500GD

PATIENT
  Age: 55 Year
  Sex: Male

DRUGS (7)
  1. TRIMETHOPRIM-SULFAMETHOXAZOLE [Suspect]
     Indication: OSTEOMYELITIS
     Dosage: TRIMETHOPRIM 320 MG-SULFAMETHOXAZOLE 1, 6 G (SEE TEXT, TWICE/DAY) PO
     Route: 048
  2. RIFAMPIN [Suspect]
     Indication: OSTEOMYELITIS
     Dosage: 1200 MG (, TWICE/DAY) PO
     Route: 048
  3. CITALOPRAM (CITALOPRAM HYDROBROMIDE) (NR) [Suspect]
     Indication: ANXIETY
     Dosage: 60 MG
  4. CITALOPRAM (CITALOPRAM HYDROBROMIDE) (NR) [Suspect]
     Indication: PANIC ATTACK
     Dosage: 60 MG
  5. CLONAZEPAM (CLONAZEPAM) (NR) [Concomitant]
  6. LORAZEPAM [Concomitant]
  7. OPIOID ANALGESICS (OPIOIDS) (NR) [Concomitant]

REACTIONS (11)
  - ABDOMINAL DISCOMFORT [None]
  - ANXIETY [None]
  - CONDITION AGGRAVATED [None]
  - CRYING [None]
  - DRUG EFFECT DECREASED [None]
  - DRUG INTERACTION [None]
  - EXTRADURAL ABSCESS [None]
  - INAPPROPRIATE SCHEDULE OF DRUG ADMINISTRATION [None]
  - OSTEOMYELITIS [None]
  - PANIC DISORDER [None]
  - POST PROCEDURAL COMPLICATION [None]
